FAERS Safety Report 5001473-6 (Version None)
Quarter: 2006Q2

REPORT INFORMATION
  Report Type: 
  Country: None (occurrence: None)
  Receive Date: 20060512
  Receipt Date: 20050419
  Transmission Date: 20061013
  Serious: Yes (Hospitalization, Disabling, Other)
  Sender: FDA-Public Use
  Company Number: US-MERCK-0504USA03757

PATIENT
  Age: 63 Year
  Sex: Female
  Weight: 65 kg

DRUGS (2)
  1. VIOXX [Suspect]
     Indication: BONE DISORDER
     Route: 048
     Dates: start: 20000801, end: 20041001
  2. VIOXX [Suspect]
     Route: 048
     Dates: start: 20020826

REACTIONS (26)
  - ANXIETY [None]
  - BREAST CANCER [None]
  - CARDIAC DISORDER [None]
  - CEREBROVASCULAR DISORDER [None]
  - CHEST PAIN [None]
  - COLONIC POLYP [None]
  - DEPRESSION [None]
  - DIVERTICULUM [None]
  - FALL [None]
  - FATIGUE [None]
  - FEMORAL NECK FRACTURE [None]
  - HEMIANOPIA [None]
  - INTERVERTEBRAL DISC DEGENERATION [None]
  - IRRITABLE BOWEL SYNDROME [None]
  - LACUNAR INFARCTION [None]
  - MICTURITION URGENCY [None]
  - MITRAL VALVE PROLAPSE [None]
  - MUSCLE STRAIN [None]
  - MYOCARDIAL INFARCTION [None]
  - NEUROPATHY [None]
  - OSTEOARTHRITIS [None]
  - PAIN [None]
  - RECURRENT CANCER [None]
  - RESTLESS LEGS SYNDROME [None]
  - SKIN LESION [None]
  - SYNCOPE VASOVAGAL [None]
